FAERS Safety Report 5893041-9 (Version None)
Quarter: 2008Q3

REPORT INFORMATION
  Report Type: 
  Country: None (occurrence: None)
  Receive Date: 20080923
  Receipt Date: 20070723
  Transmission Date: 20090109
  Serious: No
  Sender: FDA-Public Use
  Company Number: US-ASTRAZENECA-2006UW27731

PATIENT
  Age: 20420 Day
  Sex: Male
  Weight: 72.7 kg

DRUGS (23)
  1. SEROQUEL [Suspect]
     Indication: SCHIZOPHRENIA
     Route: 048
     Dates: start: 20021001, end: 20041112
  2. SEROQUEL [Suspect]
     Indication: BIPOLAR I DISORDER
     Route: 048
     Dates: start: 20021001, end: 20041112
  3. SEROQUEL [Suspect]
     Indication: DEPRESSION
     Route: 048
     Dates: start: 20021001, end: 20041112
  4. GEODON [Concomitant]
     Route: 048
     Dates: start: 20060421, end: 20070101
  5. IMIPRAMINE PALMATE [Concomitant]
     Route: 048
     Dates: start: 20040801, end: 20041201
  6. INVEGA [Concomitant]
     Dates: start: 20070101, end: 20071001
  7. ABILIFY [Concomitant]
     Dates: start: 20050620, end: 20050721
  8. NEURONTIN [Concomitant]
  9. VITAMIN E [Concomitant]
  10. CLONAZEPAM [Concomitant]
  11. NEXIUM [Concomitant]
  12. TRAZODONE HCL [Concomitant]
  13. PAXIL [Concomitant]
  14. LEXAPRO [Concomitant]
  15. REMERON [Concomitant]
  16. VIAGRA [Concomitant]
  17. NIASPAN [Concomitant]
  18. RANITIDINE [Concomitant]
  19. LIPITOR [Concomitant]
  20. ANDROGEL [Concomitant]
  21. CIPROFLOXACIN [Concomitant]
  22. DIOVAN [Concomitant]
  23. AVANDAMET [Concomitant]

REACTIONS (7)
  - BLOOD CHOLESTEROL INCREASED [None]
  - DIABETES MELLITUS [None]
  - ERECTILE DYSFUNCTION [None]
  - HAEMOGLOBIN DECREASED [None]
  - HYPERTRIGLYCERIDAEMIA [None]
  - LIVER FUNCTION TEST ABNORMAL [None]
  - WEIGHT INCREASED [None]
